FAERS Safety Report 23862222 (Version 1)
Quarter: 2024Q2

REPORT INFORMATION
  Report Type: Report from Study
  Country: US (occurrence: US)
  Receive Date: 20240516
  Receipt Date: 20240516
  Transmission Date: 20240716
  Serious: Yes (Death, Other)
  Sender: FDA-Public Use
  Company Number: US-GILEAD-2023-0642685

PATIENT
  Sex: Female

DRUGS (2)
  1. AZTREONAM LYSINE [Suspect]
     Active Substance: AZTREONAM LYSINE
     Indication: Cystic fibrosis
     Dosage: 75 MG, TID
     Route: 055
     Dates: start: 20230514, end: 20240514
  2. AZTREONAM LYSINE [Suspect]
     Active Substance: AZTREONAM LYSINE
     Dosage: INHALE THE CONTENTS OF 1 VIAL(75MG) THREE TIMES DAILY VIA NEBULIZER FOR 14 DAYS ON, 14 DAYS OFF.
     Route: 055
     Dates: start: 20230602

REACTIONS (2)
  - Death [Fatal]
  - Off label use [Unknown]
